FAERS Safety Report 13302862 (Version 1)
Quarter: 2017Q1

REPORT INFORMATION
  Report Type: Report from Study
  Country: FR (occurrence: FR)
  Receive Date: 20170307
  Receipt Date: 20170307
  Transmission Date: 20170428
  Serious: Yes (Hospitalization, Other)
  Sender: FDA-Public Use
  Company Number: FR-BRISTOL-MYERS SQUIBB COMPANY-BMS-2016-103299

PATIENT
  Age: 29 Year
  Sex: Male
  Weight: 88 kg

DRUGS (4)
  1. NIVOLUMAB [Suspect]
     Active Substance: NIVOLUMAB
     Indication: GIANT CELL TUMOUR OF TENDON SHEATH
     Dosage: UNK, Q2WK
     Route: 042
     Dates: start: 20161026, end: 20161109
  2. TRAMADOL. [Concomitant]
     Active Substance: TRAMADOL
     Indication: PRODUCT USED FOR UNKNOWN INDICATION
     Dosage: UNK
     Route: 065
     Dates: start: 20160911, end: 201611
  3. NIVOLUMAB [Suspect]
     Active Substance: NIVOLUMAB
     Indication: SYNOVITIS
     Dosage: UNK, Q2WK
     Route: 042
     Dates: start: 20160707
  4. IBUPROFENE [Concomitant]
     Active Substance: IBUPROFEN
     Indication: PRODUCT USED FOR UNKNOWN INDICATION
     Dosage: UNK
     Route: 065
     Dates: start: 20161021, end: 20161109

REACTIONS (1)
  - Myocarditis [Recovered/Resolved]

NARRATIVE: CASE EVENT DATE: 20161116
